FAERS Safety Report 6336129-0 (Version None)
Quarter: 2009Q3

REPORT INFORMATION
  Report Type: 
  Country: None (occurrence: None)
  Receive Date: 20090828
  Receipt Date: 20090828
  Transmission Date: 20100115
  Serious: Yes (Other)
  Sender: FDA-Public Use
  Company Number: None

PATIENT
  Sex: Male
  Weight: 77.3 kg

DRUGS (3)
  1. DEPAKOTE ER [Suspect]
     Indication: ABNORMAL BEHAVIOUR
     Dosage: 500 MGS TAB TAKE 2 TABS EVERY NIGHT BY MOUTH
     Route: 048
     Dates: start: 20090801
  2. DEPAKOTE ER [Suspect]
     Indication: AGITATION
     Dosage: 500 MGS TAB TAKE 2 TABS EVERY NIGHT BY MOUTH
     Route: 048
     Dates: start: 20090801
  3. DEPAKOTE ER [Suspect]
     Indication: GENERALISED ANXIETY DISORDER
     Dosage: 500 MGS TAB TAKE 2 TABS EVERY NIGHT BY MOUTH
     Route: 048
     Dates: start: 20090801

REACTIONS (8)
  - ABNORMAL BEHAVIOUR [None]
  - AGITATION [None]
  - ANXIETY [None]
  - FEAR [None]
  - FEELING JITTERY [None]
  - PRODUCT SUBSTITUTION ISSUE [None]
  - RESTLESSNESS [None]
  - SCREAMING [None]
